FAERS Safety Report 19960221 (Version 1)
Quarter: 2021Q4

REPORT INFORMATION
  Report Type: Spontaneous
  Country: CN (occurrence: CN)
  Receive Date: 20211015
  Receipt Date: 20211015
  Transmission Date: 20220303
  Serious: Yes (Hospitalization, Other)
  Sender: FDA-Public Use
  Company Number: CN-BAXTER-2021BAX026961

PATIENT
  Age: 51 Year
  Sex: Male
  Weight: 70 kg

DRUGS (9)
  1. CYCLOPHOSPHAMIDE [Suspect]
     Active Substance: CYCLOPHOSPHAMIDE
     Indication: Thymoma malignant
     Route: 042
     Dates: start: 20200803, end: 20200803
  2. CYCLOPHOSPHAMIDE [Suspect]
     Active Substance: CYCLOPHOSPHAMIDE
     Dosage: DOSE REINTRODUCED
     Route: 042
  3. SODIUM CHLORIDE [Suspect]
     Active Substance: SODIUM CHLORIDE
     Indication: Medication dilution
     Dosage: 0.9% NS +CYCLOPHOSPHAMIDE FOR INJECTION
     Route: 040
     Dates: start: 20200803, end: 20200803
  4. SODIUM CHLORIDE [Suspect]
     Active Substance: SODIUM CHLORIDE
     Dosage: 0.9% NS +EPIRUBICIN HYDROCHLORIDE FOR INJECTION
     Route: 040
     Dates: start: 20200803, end: 20200803
  5. SODIUM CHLORIDE [Suspect]
     Active Substance: SODIUM CHLORIDE
     Dosage: CISPLATIN INJECTION (LYOPHILIZED TYPE)+ 0.9% NS
     Route: 042
     Dates: start: 20200803, end: 20200803
  6. EPIRUBICIN HYDROCHLORIDE [Suspect]
     Active Substance: EPIRUBICIN HYDROCHLORIDE
     Indication: Thymoma malignant
     Route: 042
     Dates: start: 20200803, end: 20200803
  7. EPIRUBICIN HYDROCHLORIDE [Suspect]
     Active Substance: EPIRUBICIN HYDROCHLORIDE
     Dosage: DOSE REINTRODUCED
     Route: 042
  8. CISPLATIN [Suspect]
     Active Substance: CISPLATIN
     Indication: Thymoma malignant
     Dosage: CISPLATIN FOR INJECTION (LYOPHILIZED TYPE)
     Route: 041
     Dates: start: 20200803, end: 20200803
  9. CISPLATIN [Suspect]
     Active Substance: CISPLATIN
     Dosage: DOSE REINTODUCED
     Route: 041

REACTIONS (1)
  - Myelosuppression [Recovering/Resolving]

NARRATIVE: CASE EVENT DATE: 20200813
